FAERS Safety Report 8815597 (Version 1)
Quarter: 2012Q4

REPORT INFORMATION
  Report Type: 
  Country: FR (occurrence: FR)
  Receive Date: 20120928
  Receipt Date: 20120928
  Transmission Date: 20130627
  Serious: Yes (Death, Life-Threatening, Hospitalization)
  Sender: FDA-Public Use
  Company Number: FR-BRISTOL-MYERS SQUIBB COMPANY-16977332

PATIENT
  Age: 65 Year
  Sex: Male

DRUGS (6)
  1. HYDREA CAPS 500 MG [Suspect]
     Indication: MYELODYSPLASTIC SYNDROME
     Route: 048
     Dates: start: 201107, end: 20120716
  2. NOVATREX [Suspect]
     Indication: RHEUMATOID ARTHRITIS
     Dosage: Novatrex 2.5 mg tablet
     Route: 048
     Dates: start: 2002, end: 20120601
  3. METHOTREXATE [Suspect]
     Indication: RHEUMATOID ARTHRITIS
     Dosage: 10mg tabs
     Route: 048
     Dates: start: 20120601, end: 20120716
  4. CORTANCYL [Suspect]
     Dosage: Cortancyl 20 mg tablet
     Route: 048
     Dates: start: 2002
  5. MABTHERA [Suspect]
     Indication: MYELODYSPLASTIC SYNDROME
     Dosage: Mabthera 500 mg solution,
intravenous courses: 4
     Route: 042
     Dates: start: 20111129, end: 20111220
  6. AUGMENTIN [Suspect]
     Route: 048
     Dates: start: 20120702, end: 20120707

REACTIONS (6)
  - Myocarditis [Fatal]
  - Hepatocellular injury [Unknown]
  - Cholestasis [Unknown]
  - Morganella infection [Unknown]
  - Thrombocytopenia [Unknown]
  - Lymphopenia [Unknown]
